FAERS Safety Report 6774231-X (Version None)
Quarter: 2010Q2

REPORT INFORMATION
  Report Type: 
  Country: None (occurrence: None)
  Receive Date: 20100617
  Receipt Date: 20100608
  Transmission Date: 20101027
  Serious: Yes (Other)
  Sender: FDA-Public Use
  Company Number: BR-PFIZER INC-2010072040

PATIENT
  Age: 78 Year
  Sex: Male

DRUGS (1)
  1. DETRUSITOL LA [Suspect]
     Dosage: UNK
     Route: 048

REACTIONS (4)
  - BLOOD PRESSURE INCREASED [None]
  - DIZZINESS [None]
  - OEDEMA PERIPHERAL [None]
  - URINARY RETENTION [None]
